FAERS Safety Report 10413769 (Version 10)
Quarter: 2015Q3

REPORT INFORMATION
  Report Type: Spontaneous
  Country: US (occurrence: US)
  Receive Date: 20140827
  Receipt Date: 20150817
  Transmission Date: 20151125
  Serious: Yes (Hospitalization, Other)
  Sender: FDA-Public Use
  Company Number: US-PFIZER INC-2014235206

PATIENT
  Age: 70 Year
  Sex: Male

DRUGS (14)
  1. METOPROLOL [Concomitant]
     Active Substance: METOPROLOL
     Dosage: UNK
     Dates: start: 201410, end: 20150410
  2. SUTENT [Suspect]
     Active Substance: SUNITINIB MALATE
     Dosage: 50 MG, DAILY
     Dates: start: 201410, end: 20150410
  3. METOPROLOL [Concomitant]
     Active Substance: METOPROLOL
     Dosage: UNK
     Dates: end: 20150406
  4. MEGA RED KRILL OIL [Concomitant]
     Dosage: UNK
     Dates: end: 20150410
  5. VITAMIN D3 [Concomitant]
     Active Substance: CHOLECALCIFEROL
     Dosage: UNK
  6. RED YEAST [Concomitant]
     Active Substance: YEAST
     Dosage: UNK
  7. ZINC-PROSTATE HEATH WITH SAW PALMETTO [Concomitant]
     Dosage: UNK
  8. BOWEL FORMULA 1 [Concomitant]
     Dosage: UNK
  9. AMLODIPINE [Concomitant]
     Active Substance: AMLODIPINE BESYLATE
     Dosage: UNK
     Dates: start: 201410, end: 20150410
  10. IMODIUM A-D [Concomitant]
     Active Substance: LOPERAMIDE HYDROCHLORIDE
     Dosage: UNK
     Dates: start: 201410, end: 20150410
  11. PRILOSEC [Concomitant]
     Active Substance: OMEPRAZOLE MAGNESIUM
     Dosage: UNK
  12. SUTENT [Suspect]
     Active Substance: SUNITINIB MALATE
     Indication: METASTATIC RENAL CELL CARCINOMA
     Dosage: 50 MG, 1X/DAY
     Dates: start: 20140811
  13. COMPAZINE [Concomitant]
     Active Substance: PROCHLORPERAZINE MALEATE
     Dosage: UNK
     Dates: end: 20150410
  14. VITAMIN C [Concomitant]
     Active Substance: ASCORBIC ACID
     Dosage: UNK

REACTIONS (24)
  - Heart rate decreased [Recovered/Resolved]
  - Chronotropic incompetence [Unknown]
  - Blood creatinine increased [Recovered/Resolved]
  - Ageusia [Not Recovered/Not Resolved]
  - Blood pressure increased [Recovered/Resolved]
  - Skin lesion [Not Recovered/Not Resolved]
  - Hypertension [Recovered/Resolved]
  - Blood pressure fluctuation [Recovered/Resolved]
  - Fatigue [Recovered/Resolved]
  - Dysgeusia [Not Recovered/Not Resolved]
  - Metastatic renal cell carcinoma [Unknown]
  - Liver function test abnormal [Recovered/Resolved]
  - Dyspepsia [Not Recovered/Not Resolved]
  - Chills [Recovered/Resolved]
  - Dyspnoea [Recovered/Resolved]
  - Pruritus [Recovered/Resolved]
  - Asthenia [Not Recovered/Not Resolved]
  - Disease progression [Unknown]
  - Hyperhidrosis [Recovered/Resolved]
  - Cough [Recovered/Resolved]
  - Sinus node dysfunction [Unknown]
  - Gastrooesophageal reflux disease [Unknown]
  - Blood creatinine abnormal [Not Recovered/Not Resolved]
  - Heart valve stenosis [Not Recovered/Not Resolved]

NARRATIVE: CASE EVENT DATE: 2014
